FAERS Safety Report 5090205-1 (Version None)
Quarter: 2006Q3

REPORT INFORMATION
  Report Type: 
  Country: None (occurrence: None)
  Receive Date: 20060828
  Receipt Date: 20060814
  Transmission Date: 20061208
  Serious: Yes (Death, Hospitalization, Disabling)
  Sender: FDA-Public Use
  Company Number: JP-JPN-A200603144

PATIENT
  Age: 84 Year
  Sex: Female
  Weight: 48 kg

DRUGS (9)
  1. AUGMENTIN [Suspect]
     Indication: BRONCHITIS
     Dosage: 375MG THREE TIMES PER DAY
     Route: 048
     Dates: start: 20060805, end: 20060809
  2. ALLOPURINOL [Suspect]
     Indication: DRUG USE FOR UNKNOWN INDICATION
     Route: 065
     Dates: start: 20060111, end: 20060213
  3. CEFOTAX [Suspect]
     Indication: BRONCHITIS
     Dosage: 1G TWICE PER DAY
     Route: 042
     Dates: start: 20060805, end: 20060805
  4. METHYLPREDNISOLONE SODIUM SUCCINATE [Concomitant]
     Indication: PLATELET COUNT DECREASED
     Route: 042
     Dates: start: 20060809, end: 20060812
  5. FAMOTIDINE [Concomitant]
     Indication: PLATELET COUNT DECREASED
     Dates: start: 20060809
  6. CHLORPHENIRAMINE MALEATE [Concomitant]
     Indication: PLATELET COUNT DECREASED
     Dates: start: 20060809, end: 20060811
  7. ALBUTEROL SPIROS [Concomitant]
     Indication: WHEEZING
     Route: 055
     Dates: start: 20060809
  8. PREDNISOLONE [Concomitant]
     Route: 048
  9. FRESH FROZEN PLASMA [Concomitant]
     Indication: HAEMORRHAGE PROPHYLAXIS
     Dates: start: 20060813

REACTIONS (12)
  - BRONCHITIS [None]
  - CEREBRAL HAEMORRHAGE [None]
  - DEPRESSED LEVEL OF CONSCIOUSNESS [None]
  - DYSPNOEA [None]
  - EYELID OEDEMA [None]
  - GAIT DISTURBANCE [None]
  - HEADACHE [None]
  - OEDEMA PERIPHERAL [None]
  - PLATELET COUNT DECREASED [None]
  - PRURITUS [None]
  - RASH [None]
  - WHEEZING [None]
